FAERS Safety Report 24342766 (Version 1)
Quarter: 2024Q3

REPORT INFORMATION
  Report Type: Spontaneous
  Country: GB (occurrence: GB)
  Receive Date: 20240920
  Receipt Date: 20240920
  Transmission Date: 20241016
  Serious: Yes (Hospitalization, Other)
  Sender: CHEPLAPHARM
  Company Number: None

PATIENT
  Sex: Female

DRUGS (7)
  1. ORLISTAT [Suspect]
     Active Substance: ORLISTAT
     Indication: Obesity
  2. OMEPRAZOLE [Suspect]
     Active Substance: OMEPRAZOLE
  3. VENLAFAXINE HYDROCHLORIDE [Concomitant]
     Active Substance: VENLAFAXINE HYDROCHLORIDE
     Dosage: PROLONGED RELEASE
  4. AMITRIPTYLINE [Concomitant]
     Active Substance: AMITRIPTYLINE
  5. PROPRANOLOL [Concomitant]
     Active Substance: PROPRANOLOL HYDROCHLORIDE
  6. LAMOTRIGINE [Concomitant]
     Active Substance: LAMOTRIGINE
  7. DESLORATADINE [Concomitant]
     Active Substance: DESLORATADINE

REACTIONS (1)
  - Cholecystitis [Recovered/Resolved]
